FAERS Safety Report 18240112 (Version 3)
Quarter: 2021Q3

REPORT INFORMATION
  Report Type: Spontaneous
  Country: US (occurrence: US)
  Receive Date: 20200908
  Receipt Date: 20210914
  Transmission Date: 20211014
  Serious: Yes (Disabling, Other)
  Sender: FDA-Public Use
  Company Number: US-SA-2020SA237539

PATIENT
  Age: 72 Year
  Sex: Male

DRUGS (1)
  1. LANTUS [Suspect]
     Active Substance: INSULIN GLARGINE
     Indication: TYPE 2 DIABETES MELLITUS
     Dosage: 30 IU, QD, AT NIGHT
     Route: 065
     Dates: start: 2016

REACTIONS (4)
  - Blindness [Unknown]
  - Drug dose omission by device [Unknown]
  - Device issue [Unknown]
  - Blood glucose increased [Unknown]
